FAERS Safety Report 18316553 (Version 1)
Quarter: 2020Q3

REPORT INFORMATION
  Report Type: Other
  Country: CN (occurrence: CN)
  Receive Date: 20200927
  Receipt Date: 20200927
  Transmission Date: 20201103
  Serious: Yes (Death)
  Sender: FDA-Public Use
  Company Number: CN-ROCHE-1944211

PATIENT
  Sex: Female
  Weight: 54.5 kg

DRUGS (1)
  1. AVASTIN [Suspect]
     Active Substance: BEVACIZUMAB
     Indication: COLORECTAL CANCER
     Route: 041
     Dates: start: 20161115

REACTIONS (9)
  - Gastrointestinal wall thickening [Unknown]
  - Hypertension [Unknown]
  - Pain [Unknown]
  - Pyrexia [Unknown]
  - Upper respiratory tract infection [Unknown]
  - Dyspnoea [Fatal]
  - Ill-defined disorder [Unknown]
  - Nasopharyngitis [Unknown]
  - Product storage error [Unknown]
